FAERS Safety Report 5873023-3 (Version None)
Quarter: 2008Q3

REPORT INFORMATION
  Report Type: 
  Country: None (occurrence: None)
  Receive Date: 20080903
  Receipt Date: 20080814
  Transmission Date: 20090109
  Serious: Yes (Hospitalization)
  Sender: FDA-Public Use
  Company Number: 8036414

PATIENT
  Age: 28 Year
  Sex: Female
  Weight: 54.54 kg

DRUGS (4)
  1. CIMZIA [Suspect]
     Indication: CROHN'S DISEASE
     Dosage: 400 MG 1/2 W SC
     Route: 058
     Dates: start: 20080722
  2. IMURAN [Concomitant]
  3. FOLIC ACID [Concomitant]
  4. NEXIUM [Concomitant]

REACTIONS (4)
  - DIARRHOEA [None]
  - INTESTINAL STENOSIS [None]
  - NAUSEA [None]
  - VOMITING [None]
